FAERS Safety Report 11924430 (Version 1)
Quarter: 2016Q1

REPORT INFORMATION
  Report Type: Spontaneous
  Country: US (occurrence: US)
  Receive Date: 20160118
  Receipt Date: 20160118
  Transmission Date: 20160526
  Serious: No
  Sender: FDA-Public Use
  Company Number: US-SIGMA-TAU US-2015STPI000298

PATIENT
  Age: 63 Year
  Sex: Female

DRUGS (1)
  1. ABELCET [Suspect]
     Active Substance: AMPHOTERICIN B\DIMYRISTOYLPHOSPHATIDYLCHOLINE, DL-\DIMYRISTOYLPHOSPHATIDYLGLYCEROL, DL-
     Indication: PRODUCT USED FOR UNKNOWN INDICATION
     Dosage: UNK, TIW
     Route: 042
     Dates: start: 201505

REACTIONS (1)
  - Chills [Recovered/Resolved]

NARRATIVE: CASE EVENT DATE: 201505
